FAERS Safety Report 5271413-3 (Version None)
Quarter: 2007Q1

REPORT INFORMATION
  Report Type: 
  Country: None (occurrence: None)
  Receive Date: 20070316
  Receipt Date: 20070308
  Transmission Date: 20070707
  Serious: Yes (Life-Threatening)
  Sender: FDA-Public Use
  Company Number: 2007-155487-NL

PATIENT
  Age: 72 Year
  Sex: Male

DRUGS (6)
  1. DEXAMETHASONE SODIUM PHOSPHATE [Suspect]
     Indication: PREMEDICATION
     Dosage: INTRAVENOUS (NOS)
     Route: 042
     Dates: start: 20070306, end: 20070306
  2. DEXAMETHASONE SODIUM PHOSPHATE [Suspect]
     Indication: PREMEDICATION
     Dosage: INTRAVENOUS (NOS)
     Route: 042
     Dates: start: 20070309, end: 20070309
  3. GRANISETRON [Suspect]
     Indication: PREMEDICATION
     Dosage: INTRAVENOUS (NOS)
     Route: 042
     Dates: start: 20070306, end: 20070306
  4. RANITIDINE HYDROCHLORIDE [Concomitant]
  5. DIPHENHYDRAMINE HCL [Concomitant]
  6. FAMOTIDINE [Concomitant]

REACTIONS (3)
  - ANAPHYLACTIC SHOCK [None]
  - FALL [None]
  - LOSS OF CONSCIOUSNESS [None]
